FAERS Safety Report 23063373 (Version 1)
Quarter: 2023Q4

REPORT INFORMATION
  Report Type: Spontaneous
  Country: US (occurrence: None)
  Receive Date: 20231012
  Receipt Date: 20231012
  Transmission Date: 20240110
  Serious: Yes (Other)
  Sender: FDA-Public Use
  Company Number: None

PATIENT
  Age: 36 Year
  Sex: Female
  Weight: 83.25 kg

DRUGS (7)
  1. LO LOESTRIN FE [Suspect]
     Active Substance: ETHINYL ESTRADIOL\NORETHINDRONE ACETATE
     Indication: Contraception
     Dates: start: 20231008, end: 20231008
  2. NEXIUM [Concomitant]
     Active Substance: ESOMEPRAZOLE MAGNESIUM
  3. PEPCID [Concomitant]
     Active Substance: FAMOTIDINE
  4. CLARITIN [Concomitant]
     Active Substance: LORATADINE
  5. ALLEGRA [Concomitant]
     Active Substance: FEXOFENADINE HYDROCHLORIDE
  6. BUDESONIDE [Concomitant]
     Active Substance: BUDESONIDE
  7. NASACORT [Concomitant]
     Active Substance: TRIAMCINOLONE ACETONIDE

REACTIONS (2)
  - Hypersensitivity [None]
  - Abdominal pain [None]

NARRATIVE: CASE EVENT DATE: 20231008
